FAERS Safety Report 7528379-2 (Version None)
Quarter: 2011Q2

REPORT INFORMATION
  Report Type: 
  Country: None (occurrence: None)
  Receive Date: 20110517
  Receipt Date: 20110429
  Transmission Date: 20111010
  Serious: Yes (Other)
  Sender: FDA-Public Use
  Company Number: WWISSUE-593

PATIENT
  Sex: Female

DRUGS (1)
  1. DOXYCYCLINE HYCLATE [Suspect]
     Dosage: 100MG, 2/DAY, ORAL
     Route: 048
     Dates: start: 20110407, end: 20110410

REACTIONS (2)
  - THERMAL BURN [None]
  - CHEST PAIN [None]
